FAERS Safety Report 26017585 (Version 1)
Quarter: 2025Q4

REPORT INFORMATION
  Report Type: Spontaneous
  Country: EG (occurrence: EG)
  Receive Date: 20251110
  Receipt Date: 20251110
  Transmission Date: 20260117
  Serious: Yes (Life-Threatening, Other)
  Sender: HIKMA
  Company Number: EG-HIKMA PHARMACEUTICALS-EG-H14001-25-11814

PATIENT
  Age: 56 Year
  Sex: Female
  Weight: 122 kg

DRUGS (2)
  1. GEMCITABINE HYDROCHLORIDE [Suspect]
     Active Substance: GEMCITABINE HYDROCHLORIDE
     Indication: Bladder cancer
     Dosage: 2500 MILLIGRAM, 3W, CYCLE 2 DAY 8
     Route: 041
     Dates: start: 20250809
  2. CISPLATIN [Suspect]
     Active Substance: CISPLATIN
     Indication: Bladder cancer
     Dosage: 100 MILLIGRAM, 3W, DAY 1, DAY 8
     Route: 065
     Dates: start: 20250809

REACTIONS (4)
  - Deep vein thrombosis [Recovered/Resolved]
  - Superficial vein thrombosis [Recovered/Resolved]
  - Oedema peripheral [Recovered/Resolved]
  - Vasodilatation [Recovered/Resolved]

NARRATIVE: CASE EVENT DATE: 20250825
